FAERS Safety Report 8179313-6 (Version None)
Quarter: 2012Q1

REPORT INFORMATION
  Report Type: 
  Country: None (occurrence: None)
  Receive Date: 20120229
  Receipt Date: 20120229
  Transmission Date: 20120608
  Serious: Yes (Other)
  Sender: FDA-Public Use
  Company Number: None

PATIENT
  Sex: Female
  Weight: 103.8737 kg

DRUGS (1)
  1. DOXYCYCLINE HYCLATE [Suspect]
     Indication: SEXUALLY TRANSMITTED DISEASE
     Dosage: 100 MG 2 DAILY 10 DAYS

REACTIONS (5)
  - RASH [None]
  - MUSCLE SPASMS [None]
  - HAEMATOCHEZIA [None]
  - FUNGAL INFECTION [None]
  - DIARRHOEA [None]
